FAERS Safety Report 20641719 (Version 6)
Quarter: 2022Q3

REPORT INFORMATION
  Report Type: Report from Study
  Country: US (occurrence: US)
  Receive Date: 20220328
  Receipt Date: 20220723
  Transmission Date: 20221026
  Serious: Yes (Other)
  Sender: FDA-Public Use
  Company Number: US-NOVARTISTESTPH-NVSC2022US068675

PATIENT
  Age: 69 Year
  Sex: Male

DRUGS (1)
  1. ENTRESTO [Suspect]
     Active Substance: SACUBITRIL\VALSARTAN
     Indication: Product used for unknown indication
     Dosage: UNK (APPROXIMATELY 2 YEARS AGO)
     Route: 065

REACTIONS (9)
  - Ejection fraction decreased [Unknown]
  - Feeling abnormal [Unknown]
  - Nasopharyngitis [Unknown]
  - Body temperature increased [Unknown]
  - Visual impairment [Unknown]
  - Fatigue [Unknown]
  - Blood pressure decreased [Unknown]
  - Wrong technique in product usage process [Not Recovered/Not Resolved]
  - Product dose omission issue [Unknown]
